FAERS Safety Report 20586274 (Version 1)
Quarter: 2022Q1

REPORT INFORMATION
  Report Type: Spontaneous
  Country: IN (occurrence: IN)
  Receive Date: 20220313
  Receipt Date: 20220313
  Transmission Date: 20220423
  Serious: Yes (Hospitalization, Other)
  Sender: FDA-Public Use
  Company Number: IN-BEXIMCO-2022BEX00018

PATIENT
  Age: 84 Year
  Sex: Male

DRUGS (2)
  1. BACLOFEN [Suspect]
     Active Substance: BACLOFEN
     Indication: Hiccups
     Dosage: 10 MG, ONCE
     Route: 048
  2. BACLOFEN [Suspect]
     Active Substance: BACLOFEN
     Indication: Nausea

REACTIONS (3)
  - Accidental overdose [Recovered/Resolved]
  - Neurotoxicity [Recovered/Resolved]
  - Encephalopathy [Recovered/Resolved]
